FAERS Safety Report 7260341 (Version 3)
Quarter: 2013Q3

REPORT INFORMATION
  Report Type: Spontaneous
  Country: JP (occurrence: JP)
  Receive Date: 20100129
  Receipt Date: 20130710
  Transmission Date: 20140515
  Serious: Yes (Hospitalization)
  Sender: FDA-Public Use
  Company Number: JP-BIOGENIDEC-2009BI029075

PATIENT
  Age: 34 Year
  Sex: Female

DRUGS (6)
  1. AVONEX [Suspect]
     Indication: RELAPSING-REMITTING MULTIPLE SCLEROSIS
     Route: 030
     Dates: start: 20080123, end: 20080702
  2. AVONEX [Suspect]
     Indication: RELAPSING-REMITTING MULTIPLE SCLEROSIS
     Route: 030
     Dates: start: 20090708, end: 20090825
  3. TEGRETOL [Concomitant]
     Dates: start: 20060304
  4. TEGRETOL [Concomitant]
     Dates: start: 20080730, end: 20090825
  5. LIORESAL [Concomitant]
     Dates: start: 20060301, end: 20090825
  6. LOBU [Concomitant]
     Dates: start: 20080123, end: 20080707

REACTIONS (3)
  - Epilepsy [Recovered/Resolved]
  - Convulsion [Recovered/Resolved]
  - Pyrexia [Recovered/Resolved]
